FAERS Safety Report 6150183-0 (Version None)
Quarter: 2009Q2

REPORT INFORMATION
  Report Type: 
  Country: None (occurrence: None)
  Receive Date: 20090407
  Receipt Date: 20090330
  Transmission Date: 20091009
  Serious: Yes (Other)
  Sender: FDA-Public Use
  Company Number: 2008SP013193

PATIENT
  Age: 55 Year
  Sex: Female
  Weight: 61 kg

DRUGS (2)
  1. REBETOL [Suspect]
     Indication: HEPATITIS C
     Dosage: 1000
     Dates: start: 20051109, end: 20060118
  2. PEGASYS (PEGINTERFERON ALFA-2A) (180 ) [Suspect]
     Indication: HEPATITIS C
     Dosage: 180
     Dates: start: 20051109, end: 20060118

REACTIONS (3)
  - DYSPNOEA [None]
  - PRURITUS [None]
  - URTICARIA [None]
